FAERS Safety Report 18534318 (Version 2)
Quarter: 2021Q1

REPORT INFORMATION
  Report Type: Spontaneous
  Country: SK (occurrence: SK)
  Receive Date: 20201123
  Receipt Date: 20210105
  Transmission Date: 20210419
  Serious: Yes (Hospitalization)
  Sender: FDA-Public Use
  Company Number: SK-VERTEX PHARMACEUTICALS-2020-021669

PATIENT
  Sex: Female

DRUGS (10)
  1. CHOLECALCIFEROL [Concomitant]
     Active Substance: CHOLECALCIFEROL
  2. FLUTICASONE + SALMETEROL [Concomitant]
     Active Substance: FLUTICASONE FUROATE\SALMETEROL XINAFOATE
  3. ORKAMBI [Suspect]
     Active Substance: IVACAFTOR\LUMACAFTOR
     Indication: CYSTIC FIBROSIS
     Dosage: STARTED WITH HALF DOSE
     Route: 048
     Dates: start: 20201026
  4. PULMOZYME [Concomitant]
     Active Substance: DORNASE ALFA
  5. CREON [Concomitant]
     Active Substance: PANCRELIPASE AMYLASE\PANCRELIPASE LIPASE\PANCRELIPASE PROTEASE
  6. AZITHROMYCIN ANHYDROUS. [Concomitant]
     Active Substance: AZITHROMYCIN ANHYDROUS
  7. N?ACETYLCYSTEINE [Concomitant]
     Active Substance: ACETYLCYSTEINE
  8. IPRATROPIUM [Concomitant]
     Active Substance: IPRATROPIUM
  9. BROMID [Concomitant]
  10. FEXOFENADINE [Concomitant]
     Active Substance: FEXOFENADINE HYDROCHLORIDE

REACTIONS (5)
  - Chest discomfort [Recovering/Resolving]
  - Forced expiratory volume decreased [Recovered/Resolved]
  - Enterococcal infection [Recovered/Resolved]
  - Pseudomonas infection [Recovered/Resolved]
  - Bronchiolitis [Unknown]

NARRATIVE: CASE EVENT DATE: 2020
